FAERS Safety Report 13419064 (Version 2)
Quarter: 2017Q2

REPORT INFORMATION
  Report Type: Spontaneous
  Country: US (occurrence: US)
  Receive Date: 20170407
  Receipt Date: 20170614
  Transmission Date: 20170830
  Serious: No
  Sender: FDA-Public Use
  Company Number: PHEH2017US010163

PATIENT
  Sex: Male

DRUGS (1)
  1. VOTRIENT [Suspect]
     Active Substance: PAZOPANIB HYDROCHLORIDE
     Indication: ALVEOLAR SOFT PART SARCOMA
     Dosage: 400 MG, QD
     Route: 048
     Dates: start: 20170316

REACTIONS (4)
  - Back pain [Unknown]
  - Allergic sinusitis [Unknown]
  - Nausea [Unknown]
  - Myalgia [Unknown]
